FAERS Safety Report 6140478-9 (Version None)
Quarter: 2009Q2

REPORT INFORMATION
  Report Type: 
  Country: None (occurrence: None)
  Receive Date: 20090401
  Receipt Date: 20090324
  Transmission Date: 20091009
  Serious: Yes (Death)
  Sender: FDA-Public Use
  Company Number: PE-PFIZER INC-2009175207

PATIENT

DRUGS (3)
  1. XALATAN [Suspect]
     Indication: GLAUCOMA
     Dosage: UNK
     Dates: start: 20080429
  2. AMLODIPINE BESYLATE [Suspect]
     Indication: HYPERTENSION
  3. ENALAPRIL MALEATE [Concomitant]

REACTIONS (1)
  - RENAL DISORDER [None]
